FAERS Safety Report 6978924-0 (Version None)
Quarter: 2010Q3

REPORT INFORMATION
  Report Type: 
  Country: None (occurrence: None)
  Receive Date: 20100913
  Receipt Date: 20100902
  Transmission Date: 20110219
  Serious: Yes (Death, Other)
  Sender: FDA-Public Use
  Company Number: JP-JNJFOC-20100604701

PATIENT
  Sex: Female
  Weight: 53 kg

DRUGS (18)
  1. DOXIL [Suspect]
     Indication: OVARIAN CANCER RECURRENT
     Dosage: CYCLE 7
     Route: 042
  2. DOXIL [Suspect]
     Dosage: CYCLE 6
     Route: 042
  3. DOXIL [Suspect]
     Dosage: CYCLE 5
     Route: 042
  4. DOXIL [Suspect]
     Dosage: CYCLE 4
     Route: 042
  5. DOXIL [Suspect]
     Dosage: CYCLE 3
     Route: 042
  6. DOXIL [Suspect]
     Dosage: CYCLE 2
     Route: 042
  7. DOXIL [Suspect]
     Dosage: CYCLE 1
     Route: 042
  8. DECADRON [Concomitant]
     Route: 048
  9. DECADRON [Concomitant]
     Indication: PRODUCT USED FOR UNKNOWN INDICATION
     Route: 042
  10. ZANTAC [Concomitant]
     Indication: PROPHYLAXIS
     Route: 042
  11. DEXTROSE [Concomitant]
     Route: 042
  12. GOSHA-JINKI-GAN [Concomitant]
     Route: 048
  13. MAGLAX [Concomitant]
     Route: 048
  14. PYDOXAL [Concomitant]
     Route: 048
  15. PANCREAZE [Concomitant]
     Indication: DYSPEPSIA
     Route: 048
  16. ISODINE [Concomitant]
     Route: 049
  17. RINDERON-VG [Concomitant]
     Indication: PALMAR-PLANTAR ERYTHRODYSAESTHESIA SYNDROME
     Route: 061
  18. UREPEARL [Concomitant]
     Indication: PALMAR-PLANTAR ERYTHRODYSAESTHESIA SYNDROME
     Route: 061

REACTIONS (2)
  - NEUROPATHY PERIPHERAL [None]
  - OVARIAN CANCER [None]
